FAERS Safety Report 7214864-X (Version None)
Quarter: 2011Q1

REPORT INFORMATION
  Report Type: 
  Country: None (occurrence: None)
  Receive Date: 20110107
  Receipt Date: 20100526
  Transmission Date: 20110831
  Serious: No
  Sender: FDA-Public Use
  Company Number: A0854606A

PATIENT
  Age: 44 Year
  Sex: Male

DRUGS (6)
  1. INSULIN [Concomitant]
  2. TRICOR [Concomitant]
  3. LOVAZA [Suspect]
     Dosage: 2CAP TWICE PER DAY
     Route: 048
  4. NOVOLOG [Concomitant]
  5. CRESTOR [Concomitant]
  6. RAMIPRIL [Concomitant]

REACTIONS (3)
  - PRODUCT ODOUR ABNORMAL [None]
  - DYSPEPSIA [None]
  - PRODUCT QUALITY ISSUE [None]
